FAERS Safety Report 9688219 (Version 2)
Quarter: 2013Q4

REPORT INFORMATION
  Report Type: Spontaneous
  Country: FR (occurrence: FR)
  Receive Date: 20131114
  Receipt Date: 20131121
  Transmission Date: 20140711
  Serious: Yes (Hospitalization)
  Sender: FDA-Public Use
  Company Number: FR-BRISTOL-MYERS SQUIBB COMPANY-19808153

PATIENT
  Age: 58 Year
  Sex: Female

DRUGS (6)
  1. GLUCOPHAGE TABS [Suspect]
     Dosage: RECENT DOSE: 24JAN2013;?RESTARTED
     Route: 048
     Dates: start: 2011
  2. XELEVIA [Concomitant]
     Route: 048
  3. AMAREL [Concomitant]
     Dosage: TABLET
     Route: 048
  4. TRIATEC [Concomitant]
     Route: 048
     Dates: end: 20130124
  5. NEURONTIN [Concomitant]
     Route: 048
     Dates: end: 20130124
  6. VASTEN [Concomitant]
     Route: 048
     Dates: end: 20130124

REACTIONS (2)
  - Drug level increased [Recovered/Resolved]
  - Lactic acidosis [Recovered/Resolved]
